FAERS Safety Report 5054191-2 (Version None)
Quarter: 2006Q3

REPORT INFORMATION
  Report Type: 
  Country: None (occurrence: None)
  Receive Date: 20060712
  Receipt Date: 20060629
  Transmission Date: 20061208
  Serious: Yes (Hospitalization)
  Sender: FDA-Public Use
  Company Number: 2006081365

PATIENT
  Age: 44 Year
  Sex: Male

DRUGS (4)
  1. CLINDAMYCIN HYDROCHLORIDE [Suspect]
     Indication: CEREBRAL TOXOPLASMOSIS
     Dosage: 1.2 GRAM (EVERY DAY), ORAL
     Route: 048
     Dates: start: 20050822, end: 20060505
  2. PYRIMETHAMINE TAB [Suspect]
     Indication: CEREBRAL TOXOPLASMOSIS
     Dosage: 1 DOSE FORM (EVERY DAY), ORAL
     Route: 047
     Dates: start: 20050822, end: 20060505
  3. SUSTIVA [Concomitant]
  4. TRUVADA [Concomitant]

REACTIONS (4)
  - BLOOD LACTATE DEHYDROGENASE INCREASED [None]
  - NEPHROLITHIASIS [None]
  - PANCYTOPENIA [None]
  - SERUM FERRITIN INCREASED [None]
